FAERS Safety Report 18487022 (Version 1)
Quarter: 2020Q4

REPORT INFORMATION
  Report Type: Spontaneous
  Country: CO (occurrence: CO)
  Receive Date: 20201110
  Receipt Date: 20201110
  Transmission Date: 20210114
  Serious: Yes (Life-Threatening, Hospitalization, Other)
  Sender: FDA-Public Use
  Company Number: NVSC2020CO299702

PATIENT
  Age: 60 Year
  Sex: Female
  Weight: 61 kg

DRUGS (2)
  1. ANASTROZOLE. [Suspect]
     Active Substance: ANASTROZOLE
     Indication: PRODUCT USED FOR UNKNOWN INDICATION
     Dosage: UNK
     Route: 065
     Dates: start: 2017
  2. VINORELBINE [Suspect]
     Active Substance: VINORELBINE TARTRATE
     Indication: PRODUCT USED FOR UNKNOWN INDICATION
     Dosage: 1 DF, QW
     Route: 065

REACTIONS (16)
  - Pleural effusion [Unknown]
  - Tachycardia [Unknown]
  - Blood lactate dehydrogenase abnormal [Unknown]
  - Mean arterial pressure decreased [Unknown]
  - Hypoventilation [Unknown]
  - Blood alkaline phosphatase abnormal [Unknown]
  - Headache [Unknown]
  - Platelet disorder [Unknown]
  - Benign breast neoplasm [Unknown]
  - Drug intolerance [Unknown]
  - Vomiting [Unknown]
  - Pyrexia [Unknown]
  - Neoplasm progression [Unknown]
  - Dyspnoea [Unknown]
  - Metastatic neoplasm [Unknown]
  - White blood cell disorder [Unknown]

NARRATIVE: CASE EVENT DATE: 2020
